FAERS Safety Report 24388266 (Version 1)
Quarter: 2024Q4

REPORT INFORMATION
  Report Type: Spontaneous
  Country: US (occurrence: None)
  Receive Date: 20241002
  Receipt Date: 20241002
  Transmission Date: 20250115
  Serious: Yes (Hospitalization)
  Sender: Public
  Company Number: None

PATIENT
  Sex: Male

DRUGS (11)
  1. MYCOPHENOLIC ACID [Suspect]
     Active Substance: MYCOPHENOLIC ACID
     Indication: Renal transplant
     Route: 048
     Dates: start: 20240625
  2. ACYCLOVIR CAP 200MG [Concomitant]
  3. ALLOPURINOL TAB 100MG [Concomitant]
  4. ASPIRIN [Concomitant]
     Active Substance: ASPIRIN
  5. ATORVASTATIN TAB 20MG [Concomitant]
  6. CALCITRIOL [Concomitant]
     Active Substance: CALCITRIOL
  7. DEXAMETH PHO INJ 120MG/30 [Concomitant]
  8. ENVARSUS XR [Concomitant]
     Active Substance: TACROLIMUS
  9. FUROSEMIDE [Concomitant]
     Active Substance: FUROSEMIDE
  10. GABAPENTIN [Concomitant]
     Active Substance: GABAPENTIN
  11. HYDROCO/APAP TAB 7.5-325 [Concomitant]

REACTIONS (1)
  - Viral infection [None]
